FAERS Safety Report 24678368 (Version 1)
Quarter: 2024Q4

REPORT INFORMATION
  Report Type: Report from Study
  Country: IN (occurrence: IN)
  Receive Date: 20241129
  Receipt Date: 20241129
  Transmission Date: 20250114
  Serious: Yes (Hospitalization)
  Sender: ASTELLAS
  Company Number: IN-ASTELLAS-2024-AER-018737

PATIENT
  Age: 54 Year
  Sex: Female

DRUGS (1)
  1. GILTERITINIB [Suspect]
     Active Substance: GILTERITINIB
     Indication: Acute myeloid leukaemia
     Route: 048
     Dates: start: 20240914, end: 20241111

REACTIONS (6)
  - Oedema [Recovering/Resolving]
  - Rash [Recovering/Resolving]
  - Platelet count decreased [Recovering/Resolving]
  - Underdose [Unknown]
  - Off label use [Unknown]
  - Off label use [Unknown]

NARRATIVE: CASE EVENT DATE: 20240914
